FAERS Safety Report 24624122 (Version 1)
Quarter: 2024Q4

REPORT INFORMATION
  Report Type: Spontaneous
  Country: US (occurrence: None)
  Receive Date: 20241114
  Receipt Date: 20241114
  Transmission Date: 20250115
  Serious: No
  Sender: Public
  Company Number: None

PATIENT
  Age: 56 Year
  Sex: Female

DRUGS (1)
  1. HUMIRA [Suspect]
     Active Substance: ADALIMUMAB
     Indication: Rheumatoid arthritis
     Dosage: OTHER FREQUENCY : EVERY2WEEKSASDIRECTED;?
     Route: 058
     Dates: start: 202205

REACTIONS (4)
  - Joint injury [None]
  - Ligament rupture [None]
  - Meniscus injury [None]
  - Ligament rupture [None]
